FAERS Safety Report 8491161-6 (Version None)
Quarter: 2012Q2

REPORT INFORMATION
  Report Type: 
  Country: None (occurrence: None)
  Receive Date: 20120627
  Receipt Date: 20120619
  Transmission Date: 20120825
  Serious: Yes (Death)
  Sender: FDA-Public Use
  Company Number: JPI-P-022232

PATIENT
  Age: 58 Year
  Sex: Female

DRUGS (12)
  1. XYREM [Suspect]
     Indication: INSOMNIA
     Dosage: ORAL ; 9 G, (4.5 GM,2 IN 1 D),ORAL
     Route: 048
     Dates: start: 20080425
  2. METHYLPHENIDATE [Concomitant]
  3. DIAZEPAM [Concomitant]
  4. QUETIAPINE [Concomitant]
  5. PREGABALIN [Concomitant]
  6. OXYBUTYNIN [Suspect]
     Indication: PRODUCT USED FOR UNKNOWN INDICATION
  7. POLYETHYLENE GLYCOL [Concomitant]
  8. IBANDRONATE SODIUM [Concomitant]
  9. OXYCODONE HCL [Concomitant]
  10. PANTOPRAZOLE SODIUM [Concomitant]
  11. ALENDRONATE SODIUM [Concomitant]
  12. CARBIDOPA [Concomitant]

REACTIONS (1)
  - LUNG NEOPLASM MALIGNANT [None]
